FAERS Safety Report 10726422 (Version 3)
Quarter: 2015Q4

REPORT INFORMATION
  Report Type: Spontaneous
  Country: US (occurrence: US)
  Receive Date: 20150121
  Receipt Date: 20151110
  Transmission Date: 20160304
  Serious: Yes (Other)
  Sender: FDA-Public Use
  Company Number: US-PFIZER INC-2015020595

PATIENT
  Sex: Female

DRUGS (1)
  1. LYRICA [Suspect]
     Active Substance: PREGABALIN
     Dosage: UNK

REACTIONS (5)
  - Respiratory tract congestion [Unknown]
  - Cough [Unknown]
  - Gastric cancer [Unknown]
  - Gastroenteritis viral [Unknown]
  - Pain [Unknown]

NARRATIVE: CASE EVENT DATE: 2015
